FAERS Safety Report 7880487-2 (Version None)
Quarter: 2011Q4

REPORT INFORMATION
  Report Type: 
  Country: None (occurrence: None)
  Receive Date: 20111101
  Receipt Date: 20111026
  Transmission Date: 20120403
  Serious: Yes (Death)
  Sender: FDA-Public Use
  Company Number: TR-MEDIMMUNE-MEDI-0013780

PATIENT
  Sex: Male
  Weight: 2.5 kg

DRUGS (2)
  1. SYNAGIS [Suspect]
     Route: 030
     Dates: start: 20111001, end: 20111001
  2. UNKNOWN MEDICATIONS [Concomitant]

REACTIONS (1)
  - DEATH [None]
